FAERS Safety Report 4721842-9 (Version None)
Quarter: 2005Q3

REPORT INFORMATION
  Report Type: 
  Country: None (occurrence: None)
  Receive Date: 20050721
  Receipt Date: 20050505
  Transmission Date: 20060218
  Serious: No
  Sender: FDA-Public Use
  Company Number: US-BRISTOL-MYERS SQUIBB COMPANY-12959433

PATIENT
  Age: 55 Year
  Sex: Male
  Weight: 75 kg

DRUGS (7)
  1. COUMADIN [Suspect]
     Dosage: 3 MG DAILY 5 DAYS PER WEEK, AND 4.5 MG DAILY TWO DAYS PER WEEK
     Dates: start: 20041001
  2. SLIM FAST [Concomitant]
  3. LEVOXYL [Concomitant]
  4. ALTACE [Concomitant]
  5. CARDIZEM [Concomitant]
  6. LIPITOR [Concomitant]
  7. ASPIRIN [Concomitant]

REACTIONS (1)
  - INTERNATIONAL NORMALISED RATIO FLUCTUATION [None]
